FAERS Safety Report 10048633 (Version 1)
Quarter: 2014Q1

REPORT INFORMATION
  Report Type: Spontaneous
  Country: US (occurrence: US)
  Receive Date: 20140331
  Receipt Date: 20140331
  Transmission Date: 20141002
  Serious: No
  Sender: FDA-Public Use
  Company Number: US-PFIZER INC-2014087591

PATIENT
  Age: 83 Year
  Sex: Female

DRUGS (2)
  1. LYRICA [Suspect]
     Indication: ANXIETY
     Dosage: 50 MG, 3X/DAY
     Dates: start: 2013
  2. AMLODIPINE BESYLATE [Concomitant]
     Indication: HYPERTENSION
     Dosage: 250 MG, DAILY

REACTIONS (3)
  - Chest pain [Not Recovered/Not Resolved]
  - Weight increased [Unknown]
  - Fluid retention [Unknown]
